FAERS Safety Report 17388820 (Version 4)
Quarter: 2020Q3

REPORT INFORMATION
  Report Type: Spontaneous
  Country: NO (occurrence: NO)
  Receive Date: 20200207
  Receipt Date: 20200819
  Transmission Date: 20201102
  Serious: Yes (Hospitalization)
  Sender: FDA-Public Use
  Company Number: NO-EMD SERONO-E2B_90074593

PATIENT
  Age: 54 Year
  Sex: Female
  Weight: 73 kg

DRUGS (6)
  1. MAVENCLAD [Suspect]
     Active Substance: CLADRIBINE
     Indication: RELAPSING MULTIPLE SCLEROSIS
     Dosage: YEAR ONE WEEK ONE THERAPY: 2 TABLETS ON DAYS 1 AND 2 AND 1 TABLET ON DAYS 3 TO 5.
     Route: 048
     Dates: start: 20191001
  2. ALLOPURINOL. [Concomitant]
     Active Substance: ALLOPURINOL
     Indication: GOUT
     Dosage: THREE TIMES FROM SEVERAL YEARS
  3. FEXOFENADINE [Concomitant]
     Active Substance: FEXOFENADINE HYDROCHLORIDE
     Indication: URTICARIA
     Dosage: FROM SEVERAL YEARS 180 MG ONE TIME
  4. FEXOFENADINE [Concomitant]
     Active Substance: FEXOFENADINE HYDROCHLORIDE
     Indication: HYPERSENSITIVITY
  5. MAVENCLAD [Suspect]
     Active Substance: CLADRIBINE
     Dosage: YEAR ONE WEEK FIVE THERAPY: 2 TABLETS ON DAYS 1 AND 2 AND 1 TABLET ON DAYS 3 TO 5.
     Route: 048
     Dates: start: 20191028
  6. LANSOPRAZOLE. [Concomitant]
     Active Substance: LANSOPRAZOLE
     Indication: GASTRIC DISORDER
     Dosage: FROM SEVERAL YEARS
     Route: 048

REACTIONS (4)
  - Thyrotoxic crisis [Recovering/Resolving]
  - Lymphocyte count decreased [Unknown]
  - Hyperthyroidism [Recovering/Resolving]
  - Follicular thyroid cancer [Not Recovered/Not Resolved]

NARRATIVE: CASE EVENT DATE: 20191230
